FAERS Safety Report 5037931-8 (Version None)
Quarter: 2006Q2

REPORT INFORMATION
  Report Type: 
  Country: None (occurrence: None)
  Receive Date: 20060626
  Receipt Date: 20060612
  Transmission Date: 20061013
  Serious: Yes (Death, Life-Threatening, Hospitalization, Disabling)
  Sender: FDA-Public Use
  Company Number: 2004-00258

PATIENT
  Age: 64 Year
  Sex: Female
  Weight: 79 kg

DRUGS (5)
  1. VELCADE [Suspect]
     Indication: MULTIPLE MYELOMA
     Dosage: INTRAVENOUS
     Route: 042
     Dates: start: 20040608, end: 20040709
  2. METOCLOPRAMIDE [Concomitant]
  3. INSULIN [Concomitant]
  4. DEXTROSE INJECTION               (GLUCOSE INJECTION) [Concomitant]
  5. ACTRAPID HUMAN            (INSULIN HUMAN) [Concomitant]

REACTIONS (13)
  - BRONCHOPNEUMONIA [None]
  - CHEST X-RAY ABNORMAL [None]
  - DRUG INEFFECTIVE [None]
  - GASTROINTESTINAL HAEMORRHAGE [None]
  - GENERAL PHYSICAL HEALTH DETERIORATION [None]
  - HAEMOGLOBIN DECREASED [None]
  - HYPERGLYCAEMIA [None]
  - HYPERKALAEMIA [None]
  - HYPOGLYCAEMIA [None]
  - LETHARGY [None]
  - PLATELET COUNT DECREASED [None]
  - PLEURAL EFFUSION [None]
  - WHITE BLOOD CELL COUNT DECREASED [None]
